FAERS Safety Report 6425081-5 (Version None)
Quarter: 2009Q4

REPORT INFORMATION
  Report Type: 
  Country: None (occurrence: None)
  Receive Date: 20091103
  Receipt Date: 20091022
  Transmission Date: 20100525
  Serious: Yes (Other)
  Sender: FDA-Public Use
  Company Number: BR-PFIZER INC-2009286941

PATIENT
  Age: 49 Year

DRUGS (1)
  1. CELEBRA [Suspect]
     Indication: PAIN IN EXTREMITY
     Dosage: 200 MG, 2X/DAY
     Route: 048
     Dates: start: 20091015

REACTIONS (4)
  - HYPERSENSITIVITY [None]
  - KNEE OPERATION [None]
  - PAIN [None]
  - RASH [None]
